FAERS Safety Report 15966152 (Version 2)
Quarter: 2020Q1

REPORT INFORMATION
  Report Type: Spontaneous
  Country: US (occurrence: US)
  Receive Date: 20190215
  Receipt Date: 20200310
  Transmission Date: 20200409
  Serious: Yes (Other)
  Sender: FDA-Public Use
  Company Number: US-ASTRAZENECA-2018SF65567

PATIENT
  Age: 22216 Day
  Sex: Female
  Weight: 95.3 kg

DRUGS (6)
  1. CLONAZEPAM. [Concomitant]
     Active Substance: CLONAZEPAM
  2. PRAVASTATIN. [Concomitant]
     Active Substance: PRAVASTATIN
  3. PRILOSEC OTC [Suspect]
     Active Substance: OMEPRAZOLE MAGNESIUM
     Route: 048
     Dates: start: 2003
  4. PRILOSEC OTC [Suspect]
     Active Substance: OMEPRAZOLE MAGNESIUM
     Route: 048
  5. CELEXA [Concomitant]
     Active Substance: CITALOPRAM HYDROBROMIDE
  6. LISINOPRIL. [Concomitant]
     Active Substance: LISINOPRIL

REACTIONS (4)
  - Renal failure [Unknown]
  - Renal injury [Unknown]
  - Chronic kidney disease [Unknown]
  - Rebound acid hypersecretion [Unknown]

NARRATIVE: CASE EVENT DATE: 20170517
